FAERS Safety Report 5683124-0 (Version None)
Quarter: 2008Q1

REPORT INFORMATION
  Report Type: 
  Country: None (occurrence: None)
  Receive Date: 20080327
  Receipt Date: 20080319
  Transmission Date: 20080703
  Serious: Yes (Hospitalization, Other)
  Sender: FDA-Public Use
  Company Number: US-ELI_LILLY_AND_COMPANY-US200803004573

PATIENT
  Sex: Male

DRUGS (1)
  1. HUMALOG [Suspect]
     Indication: DIABETES MELLITUS

REACTIONS (6)
  - COLON CANCER STAGE IV [None]
  - HERNIA REPAIR [None]
  - INTERVERTEBRAL DISC PROTRUSION [None]
  - PAIN [None]
  - PAIN MANAGEMENT [None]
  - TUMOUR PAIN [None]
